FAERS Safety Report 16966173 (Version 1)
Quarter: 2019Q4

REPORT INFORMATION
  Report Type: Spontaneous
  Country: US (occurrence: US)
  Receive Date: 20191028
  Receipt Date: 20191028
  Transmission Date: 20200122
  Serious: No
  Sender: FDA-Public Use
  Company Number: US-PFIZER INC-2019463993

PATIENT
  Age: 44 Year
  Sex: Female
  Weight: 62.14 kg

DRUGS (1)
  1. GABAPENTIN. [Suspect]
     Active Substance: GABAPENTIN
     Indication: CERVICAL RADICULOPATHY
     Dosage: 600 MG, 2X/DAY
     Route: 048
     Dates: start: 20191016, end: 20191023

REACTIONS (5)
  - Rash [Unknown]
  - Eye swelling [Not Recovered/Not Resolved]
  - Product use in unapproved indication [Unknown]
  - Off label use [Unknown]
  - Gingival pain [Unknown]

NARRATIVE: CASE EVENT DATE: 20191016
